FAERS Safety Report 6460250-X (Version None)
Quarter: 2009Q4

REPORT INFORMATION
  Report Type: 
  Country: None (occurrence: None)
  Receive Date: 20091130
  Receipt Date: 20091116
  Transmission Date: 20100525
  Serious: Yes (Other)
  Sender: FDA-Public Use
  Company Number: PHHY2009FR51959

PATIENT
  Sex: Female

DRUGS (4)
  1. NISISCO [Suspect]
     Dosage: 160/25 MG
     Route: 048
  2. NEXEN [Suspect]
     Dosage: 2 DOSE IN 1 WEEK
     Route: 048
     Dates: end: 20090820
  3. PROPOFAN [Suspect]
     Dosage: UNK
     Route: 048
     Dates: end: 20090820
  4. TANAKAN [Concomitant]

REACTIONS (4)
  - PAIN [None]
  - RENAL FAILURE [None]
  - THYROID DISORDER [None]
  - TUBULOINTERSTITIAL NEPHRITIS [None]
